FAERS Safety Report 22340377 (Version 1)
Quarter: 2023Q2

REPORT INFORMATION
  Report Type: Spontaneous
  Country: US (occurrence: US)
  Receive Date: 20230518
  Receipt Date: 20230518
  Transmission Date: 20230722
  Serious: No
  Sender: FDA-Public Use
  Company Number: US-AMGEN-USASP2023084325

PATIENT
  Sex: Female

DRUGS (1)
  1. OTEZLA [Suspect]
     Active Substance: APREMILAST
     Indication: Product used for unknown indication
     Dosage: UNK
     Route: 065
     Dates: end: 20230512

REACTIONS (5)
  - Tremor [Recovering/Resolving]
  - Panic attack [Recovering/Resolving]
  - Paranoia [Recovering/Resolving]
  - Anxiety [Recovering/Resolving]
  - Dizziness [Recovering/Resolving]
